FAERS Safety Report 9416769 (Version 1)
Quarter: 2013Q3

REPORT INFORMATION
  Report Type: Spontaneous
  Country: US (occurrence: US)
  Receive Date: 20130724
  Receipt Date: 20130724
  Transmission Date: 20140515
  Serious: No
  Sender: FDA-Public Use
  Company Number: US-GALDERMA-US12415628

PATIENT
  Age: 61 Year
  Sex: Female
  Weight: 59 kg

DRUGS (8)
  1. ORACEA (DOXYCYCLINE, USP) CAPSULES 40 MG [Suspect]
     Indication: ROSACEA
     Route: 048
     Dates: start: 201111
  2. LOVAZA [Concomitant]
     Indication: SUPPLEMENTATION THERAPY
     Route: 048
  3. ASPIRIN [Concomitant]
     Indication: PROPHYLAXIS
     Route: 048
  4. VITAMIN D [Concomitant]
     Indication: SUPPLEMENTATION THERAPY
     Route: 048
  5. CALCIUM [Concomitant]
     Indication: SUPPLEMENTATION THERAPY
  6. IBUPROFEN [Concomitant]
     Indication: PAIN
     Route: 048
  7. TYLENOL [Concomitant]
     Indication: PAIN
     Route: 048
  8. DOVE BODY WASH [Concomitant]
     Indication: DRY SKIN PROPHYLAXIS

REACTIONS (5)
  - Rash papular [Recovering/Resolving]
  - Rash pruritic [Not Recovered/Not Resolved]
  - Rash macular [Not Recovered/Not Resolved]
  - Photosensitivity reaction [Not Recovered/Not Resolved]
  - Incorrect drug administration duration [Unknown]
